FAERS Safety Report 17912976 (Version 1)
Quarter: 2020Q2

REPORT INFORMATION
  Report Type: Report from Study
  Country: IE (occurrence: IE)
  Receive Date: 20200618
  Receipt Date: 20200618
  Transmission Date: 20200714
  Serious: Yes (Hospitalization)
  Sender: FDA-Public Use
  Company Number: IE-PFIZER INC-2020232100

PATIENT
  Age: 55 Year
  Sex: Female
  Weight: 51.1 kg

DRUGS (4)
  1. FOSTOLIN [Concomitant]
     Active Substance: ALENDRONATE SODIUM
     Indication: OSTEOPOROSIS
     Dosage: UNK
  2. WARFARIN [Concomitant]
     Active Substance: WARFARIN
     Dosage: 11 MG, 1X/DAY
  3. CEFTRIAXONE SODIUM. [Suspect]
     Active Substance: CEFTRIAXONE SODIUM
     Indication: ENDOCARDITIS
     Dosage: 2000 MG, 1X/DAY(ROUTE: MIDLINE)
     Route: 042
     Dates: start: 202005
  4. DAPTOMYCIN. [Suspect]
     Active Substance: DAPTOMYCIN
     Indication: ENDOCARDITIS
     Dosage: 500 MG, 1X/DAY(ROUTE: MIDLINE)
     Route: 042
     Dates: start: 202005

REACTIONS (4)
  - Infusion site swelling [Not Recovered/Not Resolved]
  - Discomfort [Unknown]
  - Feeling hot [Not Recovered/Not Resolved]
  - Blood test abnormal [Not Recovered/Not Resolved]

NARRATIVE: CASE EVENT DATE: 20200527
